FAERS Safety Report 8173808-7 (Version None)
Quarter: 2012Q1

REPORT INFORMATION
  Report Type: 
  Country: None (occurrence: None)
  Receive Date: 20120229
  Receipt Date: 20120222
  Transmission Date: 20120608
  Serious: Yes (Other)
  Sender: FDA-Public Use
  Company Number: CH-US-EMD SERONO, INC.-7114748

PATIENT
  Sex: Male

DRUGS (2)
  1. REBIF [Suspect]
     Indication: MULTIPLE SCLEROSIS
     Route: 058
     Dates: start: 20111212
  2. ALGIFOR [Concomitant]
     Indication: ADVERSE EVENT
     Route: 048
     Dates: start: 20120117

REACTIONS (1)
  - NEPHROLITHIASIS [None]
